FAERS Safety Report 15121216 (Version 8)
Quarter: 2020Q2

REPORT INFORMATION
  Report Type: Spontaneous
  Country: PT (occurrence: PT)
  Receive Date: 20180709
  Receipt Date: 20200629
  Transmission Date: 20200713
  Serious: Yes (Hospitalization, Other)
  Sender: FDA-Public Use
  Company Number: PT-AUROBINDO-AUR-APL-2018-034588

PATIENT
  Age: 65 Year
  Sex: Female

DRUGS (7)
  1. AZITHROMYCIN ANHYDROUS. [Suspect]
     Active Substance: AZITHROMYCIN ANHYDROUS
     Indication: PNEUMONIA
  2. AZITHROMYCIN ANHYDROUS. [Suspect]
     Active Substance: AZITHROMYCIN ANHYDROUS
     Indication: EOSINOPHILIC PNEUMONIA
     Dosage: UNK, UNKNOWN FREQ
     Route: 065
  3. AMOXICILLIN+CLAVULANIC ACID [Suspect]
     Active Substance: AMOXICILLIN\CLAVULANIC ACID
     Indication: PNEUMONIA
  4. LISINOPRIL TABLET [Suspect]
     Active Substance: LISINOPRIL
     Indication: HYPERTENSION
     Dosage: UNK, UNKNOWN FREQ
     Route: 048
  5. ALENDRONATE SODIUM;COLECALCIFEROL [Suspect]
     Active Substance: ALENDRONATE SODIUM\CHOLECALCIFEROL
     Indication: OSTEOPOROSIS
     Dosage: UNK, UNKNOWN FREQ.
     Route: 065
  6. AMOXICILLIN+CLAVULANIC ACID [Suspect]
     Active Substance: AMOXICILLIN\CLAVULANIC ACID
     Indication: EOSINOPHILIC PNEUMONIA
     Dosage: UNK, UNKNOWN FREQ.
     Route: 065
  7. PERINDOPRIL+INDAPAMIDE [Suspect]
     Active Substance: INDAPAMIDE\PERINDOPRIL
     Indication: HYPERTENSION
     Dosage: DOSE OF PERINDOPRIL HAD BEEN DOUBLED
     Route: 065

REACTIONS (8)
  - Therapeutic response decreased [Unknown]
  - Dyspnoea [Recovering/Resolving]
  - Cough [Recovering/Resolving]
  - Eosinophilic pneumonia [Recovered/Resolved]
  - Respiratory failure [Recovered/Resolved]
  - Drug ineffective for unapproved indication [Unknown]
  - Asthenia [Recovering/Resolving]
  - Pyrexia [Recovering/Resolving]
